FAERS Safety Report 10914617 (Version 3)
Quarter: 2019Q2

REPORT INFORMATION
  Report Type: Spontaneous
  Country: NO (occurrence: NO)
  Receive Date: 20150313
  Receipt Date: 20190525
  Transmission Date: 20190711
  Serious: Yes (Other)
  Sender: FDA-Public Use
  Company Number: PHHY2015NO027605

PATIENT
  Age: 55 Year
  Sex: Female

DRUGS (8)
  1. TRAMADOL. [Interacting]
     Active Substance: TRAMADOL
     Indication: PAIN IN EXTREMITY
     Dosage: 100 MG, TID
     Route: 065
  2. TRAMADOL. [Interacting]
     Active Substance: TRAMADOL
     Dosage: 100 MG, TID
     Route: 065
  3. CYMBALTA [Interacting]
     Active Substance: DULOXETINE HYDROCHLORIDE
     Dosage: 60 MG, QD
     Route: 048
  4. TRAMADOL. [Interacting]
     Active Substance: TRAMADOL
     Dosage: 800 MG, QD
     Route: 065
  5. CYMBALTA [Interacting]
     Active Substance: DULOXETINE HYDROCHLORIDE
     Indication: PAIN IN EXTREMITY
     Dosage: 600 MG, QD
     Route: 048
  6. TRAMADOL. [Interacting]
     Active Substance: TRAMADOL
     Dosage: 600 MG, QD
     Route: 065
  7. CIPROFLOXACIN. [Suspect]
     Active Substance: CIPROFLOXACIN
     Indication: URINARY TRACT INFECTION
     Dosage: UNK
     Route: 065
  8. DULOXETINE. [Interacting]
     Active Substance: DULOXETINE
     Indication: PAIN IN EXTREMITY
     Dosage: 60 MG, QD
     Route: 065

REACTIONS (16)
  - Hypertonia [Unknown]
  - Pain in extremity [Unknown]
  - Overdose [Unknown]
  - Diarrhoea [Unknown]
  - Tremor [Unknown]
  - Drug interaction [Unknown]
  - Hyperhidrosis [Unknown]
  - Hypertension [Unknown]
  - Serotonin syndrome [Unknown]
  - Incorrect dose administered [Unknown]
  - Pyrexia [Unknown]
  - Tachycardia [Unknown]
  - Confusional state [Unknown]
  - Anxiety [Unknown]
  - Clonus [Unknown]
  - Urinary tract infection [Unknown]
